FAERS Safety Report 7617912-8 (Version None)
Quarter: 2011Q3

REPORT INFORMATION
  Report Type: 
  Country: None (occurrence: None)
  Receive Date: 20110718
  Receipt Date: 20110701
  Transmission Date: 20111222
  Serious: Yes (Hospitalization, Other)
  Sender: FDA-Public Use
  Company Number: PHHY2011JP55867

PATIENT
  Age: 40 Year
  Sex: Female

DRUGS (5)
  1. CYCLOSPORINE [Suspect]
     Indication: SYSTEMIC LUPUS ERYTHEMATOSUS
     Dosage: 125 MG DAILY
     Route: 048
     Dates: start: 20091001, end: 20100201
  2. IMMUNOGLOBULINS [Concomitant]
     Indication: PANCYTOPENIA
  3. STEROIDS NOS [Concomitant]
     Indication: SYSTEMIC LUPUS ERYTHEMATOSUS
  4. IMMUNOGLOBULINS [Concomitant]
     Indication: THROMBOCYTOSIS
     Dosage: UNK
  5. ADRENAL CORTICAL EXTRACT [Suspect]
     Indication: SYSTEMIC LUPUS ERYTHEMATOSUS
     Dosage: 15 MG, UNK
     Route: 048
     Dates: start: 20091001

REACTIONS (12)
  - PANCYTOPENIA [None]
  - SYSTEMIC LUPUS ERYTHEMATOSUS [None]
  - BLOOD UREA INCREASED [None]
  - IMMUNOGLOBULINS DECREASED [None]
  - RENAL FAILURE [None]
  - BLOOD CREATININE INCREASED [None]
  - THROMBOCYTOSIS [None]
  - BLOOD POTASSIUM INCREASED [None]
  - IDIOPATHIC THROMBOCYTOPENIC PURPURA [None]
  - CYTOMEGALOVIRUS INFECTION [None]
  - ABDOMINAL PAIN [None]
  - PLATELET COUNT DECREASED [None]
